FAERS Safety Report 17824307 (Version 3)
Quarter: 2020Q2

REPORT INFORMATION
  Report Type: Spontaneous
  Country: US (occurrence: US)
  Receive Date: 20200526
  Receipt Date: 20200630
  Transmission Date: 20200714
  Serious: No
  Sender: FDA-Public Use
  Company Number: US-VERTEX PHARMACEUTICALS-2020-011283

PATIENT
  Age: 68 Year
  Sex: Female

DRUGS (2)
  1. VERAPAMIL [Concomitant]
     Active Substance: VERAPAMIL HYDROCHLORIDE
     Dosage: UNK
  2. TRIKAFTA [Suspect]
     Active Substance: ELEXACAFTOR\IVACAFTOR\TEZACAFTOR
     Indication: CYSTIC FIBROSIS
     Dosage: 1 TAB (150MG IVACAFTOR) AM AND 2 TABS (100MG ELEXACAFTOR/50MG TEZACAFTOR/75MG IVACAFTOR) PM, BID
     Route: 048
     Dates: start: 202005, end: 20200611

REACTIONS (6)
  - Insomnia [Recovered/Resolved]
  - Dizziness [Not Recovered/Not Resolved]
  - Headache [Recovered/Resolved]
  - Blood glucose abnormal [Not Recovered/Not Resolved]
  - Hypertension [Unknown]
  - Cough [Recovered/Resolved]

NARRATIVE: CASE EVENT DATE: 2020
